FAERS Safety Report 18285416 (Version 1)
Quarter: 2020Q3

REPORT INFORMATION
  Report Type: Spontaneous
  Country: US (occurrence: US)
  Receive Date: 20200918
  Receipt Date: 20200918
  Transmission Date: 20201103
  Serious: Yes (Other)
  Sender: FDA-Public Use
  Company Number: US-TEVA-2020-US-1828568

PATIENT
  Sex: Male

DRUGS (11)
  1. PRAZOSIN. [Suspect]
     Active Substance: PRAZOSIN
     Route: 065
  2. PERCOCET [Suspect]
     Active Substance: ACETAMINOPHEN\OXYCODONE HYDROCHLORIDE
     Route: 065
  3. ACETAMINOPHEN W/HYDROCODONE [Suspect]
     Active Substance: ACETAMINOPHEN\HYDROCODONE
     Route: 065
  4. GABAPENTIN. [Suspect]
     Active Substance: GABAPENTIN
     Route: 065
  5. DULOXETINE. [Suspect]
     Active Substance: DULOXETINE
     Route: 065
  6. QUETIAPINE. [Suspect]
     Active Substance: QUETIAPINE
     Route: 065
  7. MELOXICAM. [Suspect]
     Active Substance: MELOXICAM
     Route: 065
  8. VICODIN [Suspect]
     Active Substance: ACETAMINOPHEN\HYDROCODONE BITARTRATE
     Route: 065
  9. TIZANIDINE. [Suspect]
     Active Substance: TIZANIDINE
     Route: 065
  10. OXYCONTIN [Suspect]
     Active Substance: OXYCODONE HYDROCHLORIDE
     Route: 065
  11. ROXICET [Suspect]
     Active Substance: ACETAMINOPHEN\OXYCODONE HYDROCHLORIDE
     Route: 065

REACTIONS (4)
  - Neck pain [Unknown]
  - Memory impairment [Not Recovered/Not Resolved]
  - Back pain [Unknown]
  - Vertebral body replacement [Unknown]
